FAERS Safety Report 5854341-1 (Version None)
Quarter: 2008Q3

REPORT INFORMATION
  Report Type: 
  Country: None (occurrence: None)
  Receive Date: 20080822
  Receipt Date: 20080818
  Transmission Date: 20090109
  Serious: Yes (Hospitalization)
  Sender: FDA-Public Use
  Company Number: SI-BOEHRINGER INGELHEIM GMBH, GERMANY-2008-BP-12937RO

PATIENT
  Age: 35 Year
  Sex: Female

DRUGS (5)
  1. AZATHIOPRINE [Suspect]
     Indication: CROHN'S DISEASE
  2. METHYLPREDNISOLONE [Suspect]
     Indication: CROHN'S DISEASE
  3. MESALAMINE [Suspect]
     Indication: CROHN'S DISEASE
  4. FLUIDS [Concomitant]
     Indication: PANCREATITIS ACUTE
     Route: 042
  5. ANALGESICS [Concomitant]
     Indication: PANCREATITIS ACUTE

REACTIONS (4)
  - BILE DUCT STONE [None]
  - CHOLELITHIASIS [None]
  - PANCREATITIS ACUTE [None]
  - PROTEIN TOTAL DECREASED [None]
